FAERS Safety Report 16906379 (Version 1)
Quarter: 2019Q4

REPORT INFORMATION
  Report Type: Spontaneous
  Country: DE (occurrence: DE)
  Receive Date: 20191011
  Receipt Date: 20191011
  Transmission Date: 20200122
  Serious: Yes (Congenital Anomaly, Other)
  Sender: FDA-Public Use
  Company Number: DE-BRISTOL-MYERS SQUIBB COMPANY-BMS-2019-095639

PATIENT
  Sex: Male
  Weight: .84 kg

DRUGS (5)
  1. ELIQUIS [Suspect]
     Active Substance: APIXABAN
     Indication: PRODUCT USED FOR UNKNOWN INDICATION
     Dosage: 5 MILLIGRAM, BID (10 MILLIGRAM, QD (10 [MG/D (2 X 5 MG/D) ] 2 SEPARATED DOSES)
     Route: 064
     Dates: start: 20180725, end: 20180904
  2. IBUPROFEN. [Concomitant]
     Active Substance: IBUPROFEN
     Indication: PRODUCT USED FOR UNKNOWN INDICATION
     Dosage: 400 MILLIGRAM, QD (400 [MG/D (BEI BEDARF) ]/ ONLY IF NEEDED)
     Route: 064
  3. FOLSAEURE [Concomitant]
     Active Substance: FOLIC ACID
     Indication: PRODUCT USED FOR UNKNOWN INDICATION
     Dosage: UNK
     Route: 064
  4. CLEXANE [Concomitant]
     Active Substance: ENOXAPARIN SODIUM
     Indication: PRODUCT USED FOR UNKNOWN INDICATION
     Dosage: 80 MILLIGRAM, QD (80 [MG/D (2X40 MG) ] 2 SEPARATED DOSES)
     Route: 064
     Dates: start: 20180904, end: 20190217
  5. NOVALGIN (METAMIZOLE SODIUM) [Concomitant]
     Active Substance: METAMIZOLE SODIUM
     Indication: PRODUCT USED FOR UNKNOWN INDICATION
     Dosage: IF NEEDED
     Route: 064

REACTIONS (8)
  - Congenital hepatobiliary anomaly [Unknown]
  - Foetal exposure during pregnancy [Unknown]
  - Ventricular septal defect [Unknown]
  - Congenital inguinal hernia [Recovered/Resolved]
  - Patent ductus arteriosus [Recovered/Resolved]
  - Bilirubin conjugated increased [Unknown]
  - Faeces pale [Unknown]
  - Congenital umbilical hernia [Unknown]
